FAERS Safety Report 8934173 (Version 1)
Quarter: 2012Q4

REPORT INFORMATION
  Report Type: 
  Country: AU (occurrence: AU)
  Receive Date: 20121129
  Receipt Date: 20121129
  Transmission Date: 20130627
  Serious: Yes (Other)
  Sender: FDA-Public Use
  Company Number: AU-ROCHE-1160922

PATIENT
  Age: 39 Year
  Sex: Female
  Weight: 71 kg

DRUGS (2)
  1. VEMURAFENIB [Suspect]
     Indication: METASTATIC MALIGNANT MELANOMA
     Route: 048
     Dates: start: 20120614, end: 20120707
  2. VEMURAFENIB [Suspect]
     Dosage: prior to surgery
     Route: 048
     Dates: start: 20120709, end: 20120906

REACTIONS (3)
  - Disease progression [Unknown]
  - Rash maculo-papular [Recovered/Resolved]
  - Arthralgia [Recovered/Resolved]
